FAERS Safety Report 4394254-8 (Version None)
Quarter: 2004Q3

REPORT INFORMATION
  Report Type: 
  Country: None (occurrence: None)
  Receive Date: 20040707
  Receipt Date: 20040707
  Transmission Date: 20050211
  Serious: Yes (Death)
  Sender: FDA-Public Use
  Company Number: None

PATIENT
  Sex: Male

DRUGS (4)
  1. OXYCODONE HCL [Suspect]
     Indication: CRANIOTOMY
     Dosage: 10 MG Q 4 HR PRN ORAL
     Route: 048
     Dates: start: 20040131, end: 20040207
  2. OXYCODONE HCL [Suspect]
     Indication: PAIN
     Dosage: 10 MG Q 4 HR PRN ORAL
     Route: 048
     Dates: start: 20040131, end: 20040207
  3. MORPHINE [Suspect]
     Indication: CRANIOTOMY
     Dosage: 5 MG Q 2 HR PR ORAL
     Route: 048
     Dates: start: 20040131, end: 20040207
  4. MORPHINE [Suspect]
     Indication: PAIN
     Dosage: 5 MG Q 2 HR PR ORAL
     Route: 048
     Dates: start: 20040131, end: 20040207

REACTIONS (2)
  - COMA [None]
  - RESPIRATORY DEPRESSION [None]
